FAERS Safety Report 6830747-9 (Version None)
Quarter: 2010Q2

REPORT INFORMATION
  Report Type: 
  Country: None (occurrence: None)
  Receive Date: 20100520
  Receipt Date: 20090408
  Transmission Date: 20101027
  Serious: Yes (Other)
  Sender: FDA-Public Use
  Company Number: 2009196740

PATIENT
  Age: 49 Year
  Sex: Female
  Weight: 61.3 kg

DRUGS (4)
  1. PROVERA [Suspect]
     Indication: HORMONE REPLACEMENT THERAPY
     Dosage: 10MG AND 2.5MG, ORAL
     Route: 048
     Dates: start: 19850101, end: 19920101
  2. PREMARIN [Suspect]
     Indication: HORMONE REPLACEMENT THERAPY
     Dosage: 0.9 MG
     Dates: start: 19801201, end: 19990101
  3. DARVOCET [Concomitant]
  4. PARAFON FORTE [Concomitant]

REACTIONS (1)
  - BREAST CANCER [None]
